FAERS Safety Report 22302642 (Version 1)
Quarter: 2023Q2

REPORT INFORMATION
  Report Type: Other
  Country: FR (occurrence: FR)
  Receive Date: 20230510
  Receipt Date: 20230510
  Transmission Date: 20230722
  Serious: Yes (Hospitalization)
  Sender: FDA-Public Use
  Company Number: None

PATIENT

DRUGS (3)
  1. LANSOPRAZOLE [Suspect]
     Active Substance: LANSOPRAZOLE
     Indication: Medication error
     Dosage: UNK
     Route: 048
     Dates: start: 20230324
  2. CLOZAPINE [Suspect]
     Active Substance: CLOZAPINE
     Indication: Medication error
     Dosage: UNK
     Route: 048
     Dates: start: 20230324
  3. MIANSERIN HYDROCHLORIDE [Suspect]
     Active Substance: MIANSERIN HYDROCHLORIDE
     Indication: Medication error
     Dosage: UNK
     Route: 048
     Dates: start: 20230324

REACTIONS (4)
  - Feeling drunk [Recovered/Resolved]
  - Dysarthria [Recovered/Resolved]
  - Agitation [Recovered/Resolved]
  - Somnolence [Recovered/Resolved]

NARRATIVE: CASE EVENT DATE: 20230324
